FAERS Safety Report 8678313 (Version 3)
Quarter: 2013Q1

REPORT INFORMATION
  Report Type: Other
  Country: JP (occurrence: JP)
  Receive Date: 20120723
  Receipt Date: 20130118
  Transmission Date: 20140127
  Serious: Yes (Other)
  Sender: FDA-Public Use
  Company Number: JP-BRISTOL-MYERS SQUIBB COMPANY-16761876

PATIENT
  Age: 50 Year
  Sex: Male

DRUGS (5)
  1. ATAZANAVIR [Suspect]
     Indication: HIV INFECTION
     Dosage: AUG10: 300 MG DAILY
     Route: 065
     Dates: start: 200507
  2. RITONAVIR [Suspect]
     Indication: HIV INFECTION
     Dosage: AUG10: 100 MG DAILY
     Route: 065
     Dates: start: 200507
  3. TENOFOVIR DISOPROXIL FUMARATE [Suspect]
     Indication: HIV INFECTION
     Dosage: TABS
     Route: 065
     Dates: start: 200507
  4. LAMIVUDINE [Suspect]
     Indication: HIV INFECTION
     Dosage: AUG10:150 MG DAILY?RESTARTED:JUL05
     Route: 065
     Dates: start: 200505
  5. ABACAVIR [Suspect]
     Indication: HIV INFECTION
     Dosage: AUG10

REACTIONS (2)
  - Crystal nephropathy [Unknown]
  - Tubulointerstitial nephritis [Unknown]
